FAERS Safety Report 22292609 (Version 1)
Quarter: 2023Q2

REPORT INFORMATION
  Report Type: Report from Study
  Country: US (occurrence: US)
  Receive Date: 20230508
  Receipt Date: 20230508
  Transmission Date: 20230721
  Serious: No
  Sender: FDA-Public Use
  Company Number: US-DECIPHERA PHARMACEUTICALS LLC-2023US000377

PATIENT
  Sex: Male

DRUGS (5)
  1. QINLOCK [Suspect]
     Active Substance: RIPRETINIB
     Indication: Oesophageal carcinoma
     Dosage: 100 MILLIGRAM, QD
     Route: 048
     Dates: start: 20230404
  2. LISINOPRIL [Suspect]
     Active Substance: LISINOPRIL
     Indication: Product used for unknown indication
  3. JARDIANCE [Concomitant]
     Active Substance: EMPAGLIFLOZIN
     Indication: Product used for unknown indication
  4. VITAMIN D NOS [Concomitant]
     Active Substance: VITAMIN D NOS
     Indication: Product used for unknown indication
  5. IRON [Concomitant]
     Active Substance: IRON
     Indication: Product used for unknown indication
     Dosage: EVERY OTHER DAY

REACTIONS (6)
  - Hypotension [Unknown]
  - Blood test abnormal [Recovered/Resolved]
  - Dry mouth [Unknown]
  - Platelet count decreased [Unknown]
  - Underdose [Unknown]
  - Product use in unapproved indication [Unknown]

NARRATIVE: CASE EVENT DATE: 20230412
